FAERS Safety Report 6218739-4 (Version None)
Quarter: 2009Q2

REPORT INFORMATION
  Report Type: 
  Country: None (occurrence: None)
  Receive Date: 20090608
  Receipt Date: 20090527
  Transmission Date: 20091009
  Serious: Yes (Hospitalization)
  Sender: FDA-Public Use
  Company Number: AT-AMGEN-UK256032

PATIENT
  Sex: Female

DRUGS (20)
  1. PANITUMUMAB [Suspect]
     Indication: COLORECTAL CANCER
     Route: 042
     Dates: start: 20070906, end: 20071114
  2. IRINOTECAN HCL [Suspect]
     Route: 065
     Dates: start: 20070906
  3. FLUOROURACIL [Suspect]
     Route: 065
  4. LEUCOVORIN CALCIUM [Concomitant]
     Route: 065
     Dates: start: 20070906
  5. GLADEM [Concomitant]
     Route: 065
  6. MAGNESIUM SULFATE [Concomitant]
     Route: 065
  7. POTASSIUM CHLORIDE [Concomitant]
     Route: 065
  8. METRONIDAZOLE [Concomitant]
     Route: 065
  9. UROKINASE [Concomitant]
     Route: 065
  10. TAZOBACTAM [Concomitant]
     Route: 065
  11. VOLTAREN [Concomitant]
  12. LOPERAMIDE HCL [Concomitant]
  13. ACEMIN [Concomitant]
     Route: 065
  14. POLYETHYLENE GLYCOL [Concomitant]
  15. AMITRIPTLINE HYDROCHLORIDE TAB [Concomitant]
     Route: 065
  16. DOMPERIDONE [Concomitant]
     Route: 065
  17. PANTOPRAZOLE SODIUM [Concomitant]
     Route: 065
  18. PASPERTIN [Concomitant]
     Route: 065
  19. MYCOSTATIN [Concomitant]
     Route: 065
  20. MACROGOL [Concomitant]
     Route: 065

REACTIONS (3)
  - DIARRHOEA [None]
  - MUCOSAL INFLAMMATION [None]
  - NEUTROPENIA [None]
